FAERS Safety Report 13053506 (Version 1)
Quarter: 2016Q4

REPORT INFORMATION
  Report Type: Spontaneous
  Country: US (occurrence: US)
  Receive Date: 20161221
  Receipt Date: 20161221
  Transmission Date: 20170207
  Serious: Yes (Hospitalization)
  Sender: FDA-Public Use
  Company Number: None

PATIENT
  Age: 52 Year
  Sex: Male

DRUGS (1)
  1. FLUOROURACIL 50MG/ML FRESENIUS KABI USA= [Suspect]
     Active Substance: FLUOROURACIL
     Indication: PANCREATIC CARCINOMA
     Dosage: 2400MG/M2=6000MG Q2 WEEKS INTRAVENEOUSLY
     Route: 042
     Dates: start: 20161102, end: 20161104

REACTIONS (2)
  - Myocardial infarction [None]
  - Pulmonary embolism [None]

NARRATIVE: CASE EVENT DATE: 20161106
